FAERS Safety Report 11265623 (Version 1)
Quarter: 2015Q3

REPORT INFORMATION
  Report Type: Spontaneous
  Country: US (occurrence: US)
  Receive Date: 20150713
  Receipt Date: 20150713
  Transmission Date: 20151125
  Serious: Yes (Disabling)
  Sender: FDA-Public Use
  Company Number: US-MPIJNJ-2012-06796

PATIENT
  Age: 78 Year
  Sex: Male
  Weight: 99.77 kg

DRUGS (7)
  1. VELCADE [Suspect]
     Active Substance: BORTEZOMIB
     Indication: PLASMA CELL MYELOMA
     Dosage: 1.3 MG/M2, 1/WEEK
     Route: 058
     Dates: start: 20120709
  2. DEXAMETHASONE. [Concomitant]
     Active Substance: DEXAMETHASONE
     Indication: PLASMA CELL MYELOMA
  3. WARFARIN [Concomitant]
     Active Substance: WARFARIN
     Indication: PRODUCT USED FOR UNKNOWN INDICATION
  4. FUROSEMIDE. [Concomitant]
     Active Substance: FUROSEMIDE
     Indication: PRODUCT USED FOR UNKNOWN INDICATION
  5. REVLIMID [Concomitant]
     Active Substance: LENALIDOMIDE
     Indication: PLASMA CELL MYELOMA
     Dosage: 25 MG, QD
  6. VELCADE [Suspect]
     Active Substance: BORTEZOMIB
     Dosage: 1 MG/M2, 1/WEEK
     Route: 058
     Dates: start: 20120904
  7. VELCADE [Suspect]
     Active Substance: BORTEZOMIB
     Dosage: 1.5 MG/M2, 1/WEEK
     Route: 058
     Dates: start: 20120709

REACTIONS (2)
  - Neuropathy peripheral [Recovering/Resolving]
  - Balance disorder [Recovering/Resolving]

NARRATIVE: CASE EVENT DATE: 20120730
